FAERS Safety Report 16153075 (Version 1)
Quarter: 2019Q2

REPORT INFORMATION
  Report Type: Report from Study
  Country: DE (occurrence: DE)
  Receive Date: 20190403
  Receipt Date: 20190403
  Transmission Date: 20190711
  Serious: Yes (Hospitalization, Other)
  Sender: FDA-Public Use
  Company Number: DE-TEVA-2019-DE-1002160

PATIENT
  Age: 32 Year
  Sex: Female
  Weight: 55 kg

DRUGS (3)
  1. DULOXETIN 60 MG [Concomitant]
     Indication: DEPRESSION
     Dosage: 60 MILLIGRAM DAILY;
     Dates: start: 20170610
  2. COPAXONE [Suspect]
     Active Substance: GLATIRAMER ACETATE
     Indication: MULTIPLE SCLEROSIS
     Dates: start: 20160201
  3. COSENTYX [Suspect]
     Active Substance: SECUKINUMAB
     Indication: SPONDYLITIS
     Dates: start: 20160201

REACTIONS (3)
  - Cellulitis [Recovered/Resolved]
  - Limb injury [Recovered/Resolved]
  - Inflammation of wound [Recovered/Resolved]

NARRATIVE: CASE EVENT DATE: 201611
